FAERS Safety Report 4275334-4 (Version None)
Quarter: 2004Q1

REPORT INFORMATION
  Report Type: 
  Country: None (occurrence: None)
  Receive Date: 20040116
  Receipt Date: 20031113
  Transmission Date: 20041129
  Serious: Yes (Hospitalization, Other)
  Sender: FDA-Public Use
  Company Number: KII-2003-0006839

PATIENT
  Age: 40 Year
  Sex: Female

DRUGS (4)
  1. MORPHINE SULFATE [Suspect]
     Indication: DRUG USE FOR UNKNOWN INDICATION
     Dosage: ORAL
     Route: 048
  2. ANTIEPILEPTICS [Suspect]
     Indication: DRUG USE FOR UNKNOWN INDICATION
     Dosage: ORAL
     Route: 048
  3. SSRI [Suspect]
     Indication: DRUG USE FOR UNKNOWN INDICATION
     Dosage: ORAL
     Route: 048
  4. TRAZODONE HCL [Suspect]
     Indication: DRUG USE FOR UNKNOWN INDICATION
     Dosage: ORAL
     Route: 048

REACTIONS (12)
  - ALCOHOL WITHDRAWAL SYNDROME [None]
  - ATAXIA [None]
  - BLOOD CREATINE PHOSPHOKINASE INCREASED [None]
  - CONFUSIONAL STATE [None]
  - DRUG SCREEN POSITIVE [None]
  - DYSARTHRIA [None]
  - HAEMOGLOBIN DECREASED [None]
  - HALLUCINATION, VISUAL [None]
  - HEPATIC ENCEPHALOPATHY [None]
  - NAUSEA [None]
  - OVERDOSE [None]
  - PNEUMONIA [None]
